FAERS Safety Report 17923215 (Version 2)
Quarter: 2020Q2

REPORT INFORMATION
  Report Type: Spontaneous
  Country: US (occurrence: US)
  Receive Date: 20200622
  Receipt Date: 20200625
  Transmission Date: 20200714
  Serious: Yes (Death, Other)
  Sender: FDA-Public Use
  Company Number: US-GILEAD-2020-0473789

PATIENT
  Age: 68 Year
  Sex: Male
  Weight: 63 kg

DRUGS (11)
  1. ENOXAPARIN [Concomitant]
     Active Substance: ENOXAPARIN
  2. ACETAMINOPHEN. [Concomitant]
     Active Substance: ACETAMINOPHEN
  3. ASPIRIN (E.C.) [Concomitant]
     Active Substance: ASPIRIN
  4. LACTULOSE. [Concomitant]
     Active Substance: LACTULOSE
  5. CISATRACURIUM. [Concomitant]
     Active Substance: CISATRACURIUM
  6. COMPAZINE [Concomitant]
     Active Substance: PROCHLORPERAZINE MALEATE
  7. REMDESIVIR. [Suspect]
     Active Substance: REMDESIVIR
     Indication: COVID-19
     Dosage: 100 MG, QD
     Route: 042
     Dates: start: 20200607, end: 20200612
  8. GABAPENTIN. [Concomitant]
     Active Substance: GABAPENTIN
  9. ATORVASTATIN [Concomitant]
     Active Substance: ATORVASTATIN
  10. DEXTROMETHORPHAN [Concomitant]
     Active Substance: DEXTROMETHORPHAN
  11. MAGNESIUM OXIDE. [Concomitant]
     Active Substance: MAGNESIUM OXIDE

REACTIONS (2)
  - Death [Fatal]
  - Alanine aminotransferase increased [Not Recovered/Not Resolved]

NARRATIVE: CASE EVENT DATE: 20200613
